FAERS Safety Report 17440568 (Version 4)
Quarter: 2022Q3

REPORT INFORMATION
  Report Type: Spontaneous
  Country: US (occurrence: US)
  Receive Date: 20200220
  Receipt Date: 20220816
  Transmission Date: 20221027
  Serious: Yes (Hospitalization, Other)
  Sender: FDA-Public Use
  Company Number: US-PFIZER INC-2020074707

PATIENT
  Age: 84 Year
  Sex: Female
  Weight: 66.68 kg

DRUGS (17)
  1. XELJANZ XR [Suspect]
     Active Substance: TOFACITINIB CITRATE
     Indication: Rheumatoid arthritis
     Dosage: 11 MG, 1X/DAY
     Route: 048
  2. AMLODIPINE [Concomitant]
     Active Substance: AMLODIPINE BESYLATE
     Indication: Blood pressure abnormal
     Dosage: UNK
  3. ASPIRIN [Concomitant]
     Active Substance: ASPIRIN
     Dosage: 80 MG, DAILY
  4. ATORVASTATIN [Concomitant]
     Active Substance: ATORVASTATIN
     Indication: Blood cholesterol abnormal
     Dosage: 20 MG, DAILY
  5. BRIMONIDINE [Concomitant]
     Active Substance: BRIMONIDINE TARTRATE
     Indication: Glaucoma
     Dosage: UNK, DAILY (0.2 SOL 2 X DAILY RIGHT EYE)
     Route: 047
  6. CARBIDOPA\LEVODOPA [Concomitant]
     Active Substance: CARBIDOPA\LEVODOPA
     Indication: Tremor
     Dosage: UNK, DAILY (25-CARBIDOPA, 100 MG-LEVODOPA/ 1 DAILY)
  7. FOLIC ACID [Concomitant]
     Active Substance: FOLIC ACID
     Indication: Anaemia
     Dosage: 800 MG, 1X/DAY (1 DAILY PM)
  8. FOLIC ACID [Concomitant]
     Active Substance: FOLIC ACID
     Indication: Chronic obstructive pulmonary disease
  9. HYDROCODONE [Concomitant]
     Active Substance: HYDROCODONE
     Dosage: 7.5 MG, 2X/DAY (2 DAILY 1 AM, 1 PM)
  10. IRON [Concomitant]
     Active Substance: IRON
     Indication: Anaemia
     Dosage: 65 MG, 1X/DAY (1 DAILY PM)
  11. IRON [Concomitant]
     Active Substance: IRON
     Indication: Chronic obstructive pulmonary disease
  12. LASIX [Concomitant]
     Active Substance: FUROSEMIDE
     Dosage: 20 MG PER TIME
  13. LATANOPROST [Concomitant]
     Active Substance: LATANOPROST
     Indication: Glaucoma
     Dosage: UNK, DAILY (1 DAILY BOTH EYES)
     Route: 047
  14. TRELEGY ELLIPTA [Concomitant]
     Active Substance: FLUTICASONE FUROATE\UMECLIDINIUM BROMIDE\VILANTEROL TRIFENATATE
     Indication: Anaemia
     Dosage: UNK, 1X/DAY (1 DAILY PM)
  15. TRELEGY ELLIPTA [Concomitant]
     Active Substance: FLUTICASONE FUROATE\UMECLIDINIUM BROMIDE\VILANTEROL TRIFENATATE
     Indication: Chronic obstructive pulmonary disease
  16. TYLENOL [Concomitant]
     Active Substance: ACETAMINOPHEN
     Indication: Pain
     Dosage: 650 MG, 4X/DAY (2 AM,2  PM)
  17. VITAMIN D3 [Concomitant]
     Active Substance: CHOLECALCIFEROL
     Dosage: 50 UG, DAILY

REACTIONS (12)
  - Pneumonia [Recovered/Resolved]
  - Delirium [Recovered/Resolved]
  - Influenza [Recovered/Resolved]
  - Cough [Not Recovered/Not Resolved]
  - Peripheral swelling [Not Recovered/Not Resolved]
  - Weight increased [Not Recovered/Not Resolved]
  - Asthenia [Not Recovered/Not Resolved]
  - Back pain [Not Recovered/Not Resolved]
  - Chest pain [Not Recovered/Not Resolved]
  - Loss of personal independence in daily activities [Not Recovered/Not Resolved]
  - Deafness [Unknown]
  - Memory impairment [Unknown]

NARRATIVE: CASE EVENT DATE: 20200125
